FAERS Safety Report 12249030 (Version 1)
Quarter: 2016Q2

REPORT INFORMATION
  Report Type: Spontaneous
  Country: US (occurrence: US)
  Receive Date: 20160408
  Receipt Date: 20160408
  Transmission Date: 20160815
  Serious: Yes (Hospitalization)
  Sender: FDA-Public Use
  Company Number: US-SA-2016SA069775

PATIENT

DRUGS (2)
  1. PRALUENT [Suspect]
     Active Substance: ALIROCUMAB
     Route: 065
     Dates: start: 201510
  2. ALIROCUMAB PREFILLED PEN [Concomitant]
     Active Substance: ALIROCUMAB
     Dates: start: 201510

REACTIONS (8)
  - Gallbladder disorder [Unknown]
  - Blood bilirubin increased [Unknown]
  - Cholelithiasis [Unknown]
  - Cholestasis [Unknown]
  - Ascites [Unknown]
  - Jaundice [Unknown]
  - Inflammation [Unknown]
  - Liver function test increased [Unknown]
